FAERS Safety Report 8637128 (Version 4)
Quarter: 2015Q1

REPORT INFORMATION
  Report Type: Spontaneous
  Country: US (occurrence: US)
  Receive Date: 20120627
  Receipt Date: 20150330
  Transmission Date: 20150721
  Serious: No
  Sender: FDA-Public Use
  Company Number: US-ASTRAZENECA-2012SE35691

PATIENT
  Age: 56 Year
  Sex: Female

DRUGS (33)
  1. NEXIUM [Suspect]
     Active Substance: ESOMEPRAZOLE MAGNESIUM
     Indication: GASTROOESOPHAGEAL REFLUX DISEASE
     Route: 048
     Dates: start: 20030513
  2. D3 SUPPLEMENT [Concomitant]
  3. VITAMIN B12 [Concomitant]
     Active Substance: CYANOCOBALAMIN
  4. BIOTIN [Concomitant]
     Active Substance: BIOTIN
  5. FLUTICASONE [Concomitant]
     Active Substance: FLUTICASONE\FLUTICASONE PROPIONATE
     Dosage: 50 MCG
     Dates: start: 20110304
  6. NEXIUM [Suspect]
     Active Substance: ESOMEPRAZOLE MAGNESIUM
     Indication: GASTROOESOPHAGEAL REFLUX DISEASE
     Dosage: ONCE
     Route: 048
     Dates: start: 2005
  7. PEPTO-BISMOL [Concomitant]
     Active Substance: BISMUTH SUBSALICYLATE\CALCIUM CARBONATE
  8. POTASSIUM [Concomitant]
     Active Substance: POTASSIUM
     Dosage: 10 MEQ
     Dates: start: 20130314
  9. LIDODERM [Concomitant]
     Active Substance: LIDOCAINE
  10. ALKA SELTZER [Concomitant]
     Active Substance: ANHYDROUS CITRIC ACID\ASPIRIN\SODIUM BICARBONATE
  11. MYLANTA [Concomitant]
     Active Substance: ALUMINUM HYDROXIDE\MAGNESIUM HYDROXIDE\SIMETHICONE
  12. VITAMIN C [Concomitant]
     Active Substance: ASCORBIC ACID
  13. DITROPAN XL [Concomitant]
     Active Substance: OXYBUTYNIN CHLORIDE
     Dates: start: 20050102
  14. CLONAZAPAM [Concomitant]
     Dates: start: 20050308
  15. CYMBALTA [Concomitant]
     Active Substance: DULOXETINE HYDROCHLORIDE
     Dates: start: 20090424
  16. ASPIRIN. [Concomitant]
     Active Substance: ASPIRIN
  17. PREDNISONE. [Concomitant]
     Active Substance: PREDNISONE
     Dates: start: 20110919
  18. TOPAMAX [Concomitant]
     Active Substance: TOPIRAMATE
     Dates: start: 20050105
  19. MILK OF MAGNESIA [Concomitant]
     Active Substance: MAGNESIUM HYDROXIDE
  20. GAVISCON [Concomitant]
     Active Substance: ALUMINUM HYDROXIDE\MAGNESIUM CARBONATE
  21. SEROQUEL [Concomitant]
     Active Substance: QUETIAPINE FUMARATE
     Dates: start: 20080207
  22. ALLEGRA [Concomitant]
     Active Substance: FEXOFENADINE HYDROCHLORIDE
     Dates: start: 20010126
  23. NEXIUM [Suspect]
     Active Substance: ESOMEPRAZOLE MAGNESIUM
     Indication: GASTROOESOPHAGEAL REFLUX DISEASE
     Route: 048
     Dates: start: 20050303
  24. DITROPAN XL [Concomitant]
     Active Substance: OXYBUTYNIN CHLORIDE
  25. OCUTIVE [Concomitant]
  26. CLONAZAPAM [Concomitant]
     Dates: start: 20080720
  27. EFFEXOR XR [Concomitant]
     Active Substance: VENLAFAXINE HYDROCHLORIDE
     Dates: start: 20050105
  28. ZYPREXA [Concomitant]
     Active Substance: OLANZAPINE
     Dates: start: 20050407
  29. PREVACID [Concomitant]
     Active Substance: LANSOPRAZOLE
  30. TUMS [Concomitant]
     Active Substance: CALCIUM CARBONATE
  31. PANTOPRAZOLE [Concomitant]
     Active Substance: PANTOPRAZOLE SODIUM
     Dates: start: 20080217
  32. ACIPHEX [Concomitant]
     Active Substance: RABEPRAZOLE SODIUM
  33. ROLAIDS [Concomitant]
     Active Substance: CALCIUM CARBONATE\MAGNESIUM HYDROXIDE

REACTIONS (10)
  - Osteoporosis [Unknown]
  - Multiple fractures [Unknown]
  - Cartilage atrophy [Unknown]
  - Osteopenia [Unknown]
  - Fall [Unknown]
  - Bone disorder [Unknown]
  - Arthritis [Unknown]
  - Calcium deficiency [Unknown]
  - Ehlers-Danlos syndrome [Unknown]
  - Epidermolysis bullosa [Unknown]

NARRATIVE: CASE EVENT DATE: 2009
